FAERS Safety Report 7833566-X (Version None)
Quarter: 2011Q4

REPORT INFORMATION
  Report Type: 
  Country: None (occurrence: None)
  Receive Date: 20111024
  Receipt Date: 20111014
  Transmission Date: 20120403
  Serious: Yes (Hospitalization)
  Sender: FDA-Public Use
  Company Number: US-ASTRAZENECA-2011SE48501

PATIENT
  Age: 63 Year
  Sex: Male
  Weight: 96.2 kg

DRUGS (6)
  1. NORVASC [Concomitant]
     Indication: HYPERTENSION
  2. PROAIR HFA [Concomitant]
     Indication: CHRONIC OBSTRUCTIVE PULMONARY DISEASE
     Dosage: AS REQUIRED
  3. ADVAIR DISKUS 100/50 [Concomitant]
     Dosage: 250/50 MCG ONE PUFF TWO TIMES A DAY
  4. LISINOPRIL AND HYDROCHLOROTHIAZIDE [Concomitant]
     Indication: HYPERTENSION
     Dosage: 20/12.5 MG TWO TIMES A DAY
  5. ALBUTEROL [Concomitant]
     Dosage: 2 PUFFS AS REQUIRED
  6. SYMBICORT [Suspect]
     Indication: CHRONIC OBSTRUCTIVE PULMONARY DISEASE
     Dosage: TWO PUFFS TWO TIMES A DAY
     Route: 055
     Dates: start: 20110506

REACTIONS (1)
  - PNEUMONIA [None]
